FAERS Safety Report 8328076-X (Version None)
Quarter: 2012Q2

REPORT INFORMATION
  Report Type: 
  Country: None (occurrence: None)
  Receive Date: 20120502
  Receipt Date: 20120424
  Transmission Date: 20120825
  Serious: Yes (Other)
  Sender: FDA-Public Use
  Company Number: PHEH2011US00507

PATIENT
  Sex: Female

DRUGS (1)
  1. ZOMETA [Suspect]
     Dosage: UNK
     Dates: end: 20090701

REACTIONS (12)
  - GINGIVAL INFECTION [None]
  - DEFORMITY [None]
  - GINGIVAL SWELLING [None]
  - TOOTH ABSCESS [None]
  - DISABILITY [None]
  - GINGIVAL BLEEDING [None]
  - INJURY [None]
  - MULTIPLE MYELOMA [None]
  - OSTEONECROSIS OF JAW [None]
  - PAIN [None]
  - INFECTION [None]
  - EMOTIONAL DISTRESS [None]
